FAERS Safety Report 23031164 (Version 1)
Quarter: 2023Q4

REPORT INFORMATION
  Report Type: Spontaneous
  Country: US (occurrence: US)
  Receive Date: 20231005
  Receipt Date: 20231005
  Transmission Date: 20240109
  Serious: No
  Sender: FDA-Public Use
  Company Number: US-HBP-2023US029702

PATIENT
  Age: 59 Year
  Sex: Female

DRUGS (3)
  1. MECHLORETHAMINE [Suspect]
     Active Substance: MECHLORETHAMINE
     Indication: Cutaneous T-cell lymphoma
     Dosage: UNK, 3/WEEK
     Route: 061
  2. MECHLORETHAMINE [Suspect]
     Active Substance: MECHLORETHAMINE
     Dosage: UNK, UNKNOWN
     Route: 061
  3. CLOBETASOL [Concomitant]
     Active Substance: CLOBETASOL
     Indication: Cutaneous T-cell lymphoma
     Dosage: UNK, 3/WEEK

REACTIONS (3)
  - Application site exfoliation [Recovered/Resolved]
  - Post inflammatory pigmentation change [Recovered/Resolved]
  - Off label use [Unknown]
